FAERS Safety Report 6067224-1 (Version None)
Quarter: 2009Q1

REPORT INFORMATION
  Report Type: 
  Country: None (occurrence: None)
  Receive Date: 20090203
  Receipt Date: 20090121
  Transmission Date: 20090719
  Serious: Yes (Hospitalization, Other)
  Sender: FDA-Public Use
  Company Number: CHPA2009US01040

PATIENT
  Age: 79 Year
  Sex: Male
  Weight: 86.2 kg

DRUGS (5)
  1. MAALOX ANTACID/ANTIGAS MAX LIQ (NCH) (MAGNESIUM HYDROXIDE, ALUMINIUM H [Suspect]
     Indication: ABDOMINAL DISTENSION
     Dosage: 1-2 TBSP, QHS, ONCE OR TWICE A WEEK ON AND OFF, ORAL
     Route: 048
     Dates: start: 19940101
  2. MAALOX ANTACID/ANTIGAS MAX LIQ (NCH) (MAGNESIUM HYDROXIDE, ALUMINIUM H [Suspect]
     Indication: DYSPEPSIA
     Dosage: 1-2 TBSP, QHS, ONCE OR TWICE A WEEK ON AND OFF, ORAL
     Route: 048
     Dates: start: 19940101
  3. METOPROLOL TARTRATE [Concomitant]
  4. DRUG THERAPY NOS (DRUG THERAPY NOS) [Concomitant]
  5. WARFARIN SODIUM [Concomitant]

REACTIONS (3)
  - ATRIAL FIBRILLATION [None]
  - OSTEOARTHRITIS [None]
  - REFUSAL OF TREATMENT BY PATIENT [None]
